FAERS Safety Report 9268412 (Version 1)
Quarter: 2013Q2

REPORT INFORMATION
  Report Type: Spontaneous
  Country: US (occurrence: US)
  Receive Date: 20130502
  Receipt Date: 20130502
  Transmission Date: 20140414
  Serious: No
  Sender: FDA-Public Use
  Company Number: US-ALEXION-A201201873

PATIENT
  Age: 40 Year
  Sex: Male
  Weight: 103 kg

DRUGS (3)
  1. SOLIRIS 300MG [Suspect]
     Indication: PAROXYSMAL NOCTURNAL HAEMOGLOBINURIA
     Dosage: 900 MG, Q2W
     Route: 042
  2. SOLIRIS 300MG [Suspect]
     Dosage: UNK, Q12D
     Route: 042
  3. FOLIC ACID [Concomitant]
     Dosage: UNK

REACTIONS (2)
  - Chromaturia [Not Recovered/Not Resolved]
  - Dysphagia [Not Recovered/Not Resolved]
